FAERS Safety Report 12167433 (Version 2)
Quarter: 2016Q1

REPORT INFORMATION
  Report Type: Spontaneous
  Country: US (occurrence: US)
  Receive Date: 20160310
  Receipt Date: 20160311
  Transmission Date: 20160526
  Serious: No
  Sender: FDA-Public Use
  Company Number: US-PFIZER INC-2016147857

PATIENT
  Age: 65 Year
  Sex: Female
  Weight: 91 kg

DRUGS (3)
  1. CELECOXIB. [Suspect]
     Active Substance: CELECOXIB
     Indication: SPINAL COLUMN INJURY
     Dosage: 200 MG, 1X/DAY
     Dates: start: 201601, end: 201602
  2. CELECOXIB. [Suspect]
     Active Substance: CELECOXIB
     Indication: NECK INJURY
  3. CELECOXIB. [Suspect]
     Active Substance: CELECOXIB
     Indication: ROTATOR CUFF SYNDROME

REACTIONS (1)
  - Drug effect incomplete [Recovered/Resolved]

NARRATIVE: CASE EVENT DATE: 201601
